FAERS Safety Report 25184070 (Version 1)
Quarter: 2025Q2

REPORT INFORMATION
  Report Type: Spontaneous
  Country: CN (occurrence: CN)
  Receive Date: 20250410
  Receipt Date: 20250410
  Transmission Date: 20250717
  Serious: Yes (Hospitalization)
  Sender: COHERUS
  Company Number: CN-SHANGHAI JUNSHI BIOSCIENCES CO., LTD.-CN2025013622

PATIENT

DRUGS (6)
  1. TORIPALIMAB [Suspect]
     Active Substance: TORIPALIMAB
     Indication: Tonsil cancer
     Dosage: 240 MG (D1, Q21D)
     Route: 041
     Dates: start: 20241224, end: 20241224
  2. PACLITAXEL [Suspect]
     Active Substance: PACLITAXEL
     Indication: Tonsil cancer
     Dosage: 200 MG (D1?D4), 21 DAYS AS A CYCLE
     Route: 041
     Dates: start: 20241224, end: 20241227
  3. CISPLATIN [Suspect]
     Active Substance: CISPLATIN
     Indication: Tonsil cancer
     Dosage: 30 MG (D1-D3,), 21 DAYS AS A CYCLE, QD
     Route: 041
     Dates: start: 20241224, end: 20241226
  4. SODIUM CHLORIDE [Concomitant]
     Active Substance: SODIUM CHLORIDE
     Indication: Medication dilution
     Dosage: 100 ML (D1), 21 DAYS AS A CYCLE
     Route: 041
     Dates: start: 20241224, end: 20241224
  5. SODIUM CHLORIDE [Concomitant]
     Active Substance: SODIUM CHLORIDE
     Dosage: 250 ML (D1-D3, QD), 21 DAYS AS A CYCLE
     Route: 041
     Dates: start: 20241224, end: 20241226
  6. SODIUM CHLORIDE [Concomitant]
     Active Substance: SODIUM CHLORIDE
     Dosage: 40 ML (D1?D4), 21 DAYS AS A CYCLE
     Route: 041
     Dates: start: 20241224, end: 20241227

REACTIONS (1)
  - Myelosuppression [Recovering/Resolving]

NARRATIVE: CASE EVENT DATE: 20250102
